FAERS Safety Report 9585402 (Version 1)
Quarter: 2013Q4

REPORT INFORMATION
  Report Type: Spontaneous
  Country: US (occurrence: US)
  Receive Date: 20131002
  Receipt Date: 20131002
  Transmission Date: 20140711
  Serious: Yes (Hospitalization)
  Sender: FDA-Public Use
  Company Number: US-AMGEN-USASP2013063916

PATIENT
  Age: 35 Year
  Sex: Male

DRUGS (1)
  1. ENBREL [Suspect]
     Indication: PSORIASIS
     Dosage: UNK UNK, QWK
     Route: 065
     Dates: start: 20130208, end: 201307

REACTIONS (4)
  - Cellulitis [Not Recovered/Not Resolved]
  - Sarcoidosis [Recovered/Resolved]
  - Depression [Not Recovered/Not Resolved]
  - Skin lesion [Not Recovered/Not Resolved]
